FAERS Safety Report 8451271 (Version 2)
Quarter: 2013Q2

REPORT INFORMATION
  Report Type: Spontaneous
  Country: US (occurrence: None)
  Receive Date: 20120213
  Receipt Date: 20130313
  Transmission Date: 20140414
  Serious: No
  Sender: FDA-Public Use
  Company Number: 1000026319

PATIENT
  Sex: Female

DRUGS (4)
  1. SAVELLA [Suspect]
     Indication: FIBROMYALGIA
     Dosage: 12.5 MG (12.5 MG, 1 IN 1 D), ORAL
     Route: 048
     Dates: start: 2010, end: 2010
  2. SAVELLA [Suspect]
     Indication: FIBROMYALGIA
     Route: 048
     Dates: start: 2010, end: 201202
  3. TRAZODONE (TRAZODONE) [Concomitant]
  4. ALPRAZOLAM (ALPRAZOLAM) [Concomitant]

REACTIONS (4)
  - BACK PAIN [None]
  - SCIATICA [None]
  - PHOTOPHOBIA [None]
  - Food craving [None]
